FAERS Safety Report 15433407 (Version 1)
Quarter: 2018Q3

REPORT INFORMATION
  Report Type: Spontaneous
  Country: ID (occurrence: ID)
  Receive Date: 20180927
  Receipt Date: 20180927
  Transmission Date: 20181010
  Serious: Yes (Hospitalization)
  Sender: FDA-Public Use
  Company Number: ID-B.I. PHARMACEUTICALS,INC./RIDGEFIELD-2018-BI-047153

PATIENT
  Age: 38 Year
  Sex: Male

DRUGS (1)
  1. GILOTRIF [Suspect]
     Active Substance: AFATINIB
     Indication: NON-SMALL CELL LUNG CANCER
     Route: 065

REACTIONS (7)
  - Dysphagia [Unknown]
  - Oral discomfort [Unknown]
  - Pleural effusion [Unknown]
  - Odynophagia [Unknown]
  - Glossodynia [Unknown]
  - Tongue erythema [Unknown]
  - Vomiting [Unknown]

NARRATIVE: CASE EVENT DATE: 20180920
